FAERS Safety Report 13911542 (Version 1)
Quarter: 2017Q3

REPORT INFORMATION
  Report Type: Spontaneous
  Country: US (occurrence: US)
  Receive Date: 20170828
  Receipt Date: 20170828
  Transmission Date: 20171127
  Serious: No
  Sender: FDA-Public Use
  Company Number: US-ROCHE-1141371

PATIENT
  Age: 16 Year
  Sex: Male

DRUGS (1)
  1. NUTROPIN AQ [Suspect]
     Active Substance: SOMATROPIN
     Indication: DWARFISM
     Dosage: 0.58 ML
     Route: 058
     Dates: start: 20000901

REACTIONS (4)
  - Breast mass [Unknown]
  - Limb mass [Unknown]
  - Headache [Unknown]
  - Acne [Unknown]

NARRATIVE: CASE EVENT DATE: 200109
